FAERS Safety Report 10603226 (Version 2)
Quarter: 2014Q4

REPORT INFORMATION
  Report Type: Spontaneous
  Country: US (occurrence: US)
  Receive Date: 20141124
  Receipt Date: 20141124
  Transmission Date: 20150529
  Serious: Yes (Hospitalization, Other)
  Sender: FDA-Public Use
  Company Number: US-PFIZER INC-2014317035

PATIENT
  Age: 16 Year
  Sex: Male

DRUGS (3)
  1. CHLORPHENIRAMINE [Suspect]
     Active Substance: CHLORPHENIRAMINE
     Dosage: UNK
  2. DEXTROMETHORPHAN HBR [Suspect]
     Active Substance: DEXTROMETHORPHAN HYDROBROMIDE
     Dosage: UNK
  3. METHADONE [Suspect]
     Active Substance: METHADONE HYDROCHLORIDE
     Dosage: UNK

REACTIONS (8)
  - Hyperthermia [Recovered/Resolved]
  - Suicide attempt [Unknown]
  - Tachycardia [Recovering/Resolving]
  - Serotonin syndrome [Recovering/Resolving]
  - Hyperhidrosis [Recovering/Resolving]
  - Overdose [Unknown]
  - Myoclonus [Recovering/Resolving]
  - Rhabdomyolysis [Recovering/Resolving]
